FAERS Safety Report 22594431 (Version 1)
Quarter: 2023Q2

REPORT INFORMATION
  Report Type: Spontaneous
  Country: CN (occurrence: CN)
  Receive Date: 20230613
  Receipt Date: 20230613
  Transmission Date: 20230722
  Serious: Yes (Other)
  Sender: FDA-Public Use
  Company Number: CN-PFIZER INC-PV202300100894

PATIENT
  Age: 85 Year
  Sex: Female
  Weight: 60 kg

DRUGS (2)
  1. NIRMATRELVIR\RITONAVIR [Interacting]
     Active Substance: NIRMATRELVIR\RITONAVIR
     Indication: Coronavirus infection
     Dosage: 400 MG, 2X/DAY
     Route: 048
     Dates: start: 20230526, end: 20230530
  2. QUETIAPINE FUMARATE [Interacting]
     Active Substance: QUETIAPINE FUMARATE
     Indication: Mania
     Dosage: 100 MG, 1X/DAY
     Route: 048
     Dates: start: 20230501, end: 20230527

REACTIONS (9)
  - Contraindicated product administered [Unknown]
  - Drug interaction [Recovering/Resolving]
  - Antipsychotic drug level increased [Recovering/Resolving]
  - Coma [Recovering/Resolving]
  - Hypotension [Recovering/Resolving]
  - Somnolence [Recovering/Resolving]
  - Mental disorder [Recovering/Resolving]
  - Oxygen saturation decreased [Recovering/Resolving]
  - Shock [Recovering/Resolving]

NARRATIVE: CASE EVENT DATE: 20230526
